FAERS Safety Report 7968204-9 (Version None)
Quarter: 2011Q4

REPORT INFORMATION
  Report Type: 
  Country: None (occurrence: None)
  Receive Date: 20111207
  Receipt Date: 20111122
  Transmission Date: 20120403
  Serious: Yes (Other)
  Sender: FDA-Public Use
  Company Number: 2011-01249

PATIENT
  Age: 70 Year
  Sex: Female

DRUGS (4)
  1. VERAPAMIL [Suspect]
     Indication: ATRIAL FIBRILLATION
  2. LISINOPRIL [Suspect]
     Indication: HYPERTENSION
     Dosage: 10 MG, ORAL
     Route: 048
     Dates: start: 20110805, end: 20110907
  3. LOSARTAN POTASSIUM [Suspect]
     Indication: HYPERTENSION
     Dosage: 12.5 MG (12.5 MG, PER DAY), ORAL, 25 MG (25 MG, PER DAY), 50 MG (50 MG, PER DAY)
     Route: 048
     Dates: start: 20110922
  4. LOSARTAN POTASSIUM [Suspect]
     Indication: HYPERTENSION
     Dosage: 12.5 MG (12.5 MG, PER DAY), ORAL, 25 MG (25 MG, PER DAY), 50 MG (50 MG, PER DAY)
     Route: 048
     Dates: start: 20110907

REACTIONS (13)
  - DIARRHOEA [None]
  - COUGH [None]
  - FIBROMYALGIA [None]
  - DECREASED APPETITE [None]
  - DISEASE RECURRENCE [None]
  - MUSCLE SPASMS [None]
  - ATRIAL FIBRILLATION [None]
  - SLEEP DISORDER [None]
  - ARTHRALGIA [None]
  - ABDOMINAL PAIN [None]
  - MUSCULOSKELETAL PAIN [None]
  - URINARY INCONTINENCE [None]
  - GASTROINTESTINAL TRACT IRRITATION [None]
